FAERS Safety Report 13387816 (Version 2)
Quarter: 2017Q4

REPORT INFORMATION
  Report Type: Spontaneous
  Country: US (occurrence: US)
  Receive Date: 20170330
  Receipt Date: 20171020
  Transmission Date: 20180320
  Serious: No
  Sender: FDA-Public Use
  Company Number: US-TEIKOKU PHARMA USA-TPU2017-00161

PATIENT
  Sex: Female
  Weight: 120.76 kg

DRUGS (2)
  1. LIDOCAINE PATCH [Suspect]
     Active Substance: LIDOCAINE
     Indication: LIPOMA
  2. LIDOCAINE PATCH [Suspect]
     Active Substance: LIDOCAINE
     Indication: TENDONITIS
     Dosage: 2 PATCHES 12 HOURS ON AND 12 HOURS OFF. ONE PATCH ON FOOT AND ONE PATCH ON CALF.
     Route: 061

REACTIONS (2)
  - Meniscus injury [Not Recovered/Not Resolved]
  - Cyst [Not Recovered/Not Resolved]
